FAERS Safety Report 8593110-9 (Version None)
Quarter: 2012Q3

REPORT INFORMATION
  Report Type: 
  Country: None (occurrence: None)
  Receive Date: 20120814
  Receipt Date: 20100901
  Transmission Date: 20120928
  Serious: Yes (Other)
  Sender: FDA-Public Use
  Company Number: PT-ROCHE-1095818

PATIENT
  Age: 71 Year
  Sex: Male

DRUGS (3)
  1. XELODA [Suspect]
     Indication: GASTROOESOPHAGEAL CANCER
  2. OXALIPLATIN [Concomitant]
     Indication: GASTROOESOPHAGEAL CANCER
  3. CISPLATIN [Concomitant]
     Indication: GASTROOESOPHAGEAL CANCER

REACTIONS (1)
  - DISEASE PROGRESSION [None]
